FAERS Safety Report 24540831 (Version 1)
Quarter: 2024Q4

REPORT INFORMATION
  Report Type: Spontaneous
  Country: US (occurrence: None)
  Receive Date: 20241023
  Receipt Date: 20241023
  Transmission Date: 20250115
  Serious: Yes (Hospitalization, Disabling)
  Sender: Public
  Company Number: None

PATIENT
  Age: 67 Year
  Sex: Female
  Weight: 48.99 kg

DRUGS (1)
  1. PROLIA [Suspect]
     Active Substance: DENOSUMAB
     Indication: Osteoporosis
     Dosage: OTHER FREQUENCY : EVERY 6 MONTHS;?
     Route: 011
     Dates: start: 20180708, end: 20220510

REACTIONS (4)
  - Pathological fracture [None]
  - Spinal fracture [None]
  - Lumbar vertebral fracture [None]
  - Thoracic vertebral fracture [None]

NARRATIVE: CASE EVENT DATE: 20230424
